FAERS Safety Report 11259673 (Version 1)
Quarter: 2015Q3

REPORT INFORMATION
  Report Type: Spontaneous
  Country: US (occurrence: None)
  Receive Date: 20150709
  Receipt Date: 20150709
  Transmission Date: 20151125
  Serious: Yes (Disabling)
  Sender: FDA-Public Use
  Company Number: None

PATIENT
  Age: 5 Year
  Sex: Female
  Weight: 19.05 kg

DRUGS (2)
  1. LACTULOSE. [Concomitant]
     Active Substance: LACTULOSE
  2. MIRALAX [Suspect]
     Active Substance: POLYETHYLENE GLYCOL 3350
     Indication: CONSTIPATION
     Route: 048
     Dates: start: 20100827, end: 20150131

REACTIONS (6)
  - Developmental delay [None]
  - Autism [None]
  - Insomnia [None]
  - Illiteracy [None]
  - Pyrexia [None]
  - Vomiting [None]

NARRATIVE: CASE EVENT DATE: 20150622
